FAERS Safety Report 6479933-0 (Version None)
Quarter: 2009Q4

REPORT INFORMATION
  Report Type: 
  Country: None (occurrence: None)
  Receive Date: 20091208
  Receipt Date: 20091112
  Transmission Date: 20100525
  Serious: Yes (Other)
  Sender: FDA-Public Use
  Company Number: US-SANOFI-AVENTIS-2009SA002470

PATIENT
  Sex: Male

DRUGS (2)
  1. LANTUS [Suspect]
     Route: 058
  2. OPTICLICK [Suspect]
     Dates: start: 20080101

REACTIONS (2)
  - BLOOD GLUCOSE INCREASED [None]
  - TOE AMPUTATION [None]
